FAERS Safety Report 10706302 (Version 2)
Quarter: 2015Q1

REPORT INFORMATION
  Report Type: Report from Study
  Country: UG (occurrence: None)
  Receive Date: 20150109
  Receipt Date: 20150115
  Transmission Date: 20150721
  Serious: Yes (Death, Life-Threatening, Other)
  Sender: FDA-Public Use
  Company Number: UG2014GSK046238

PATIENT
  Age: 37 Year
  Sex: Male

DRUGS (8)
  1. FLUCONAZOLE (FLUCONAZOLE) [Concomitant]
     Active Substance: FLUCONAZOLE
  2. LAMIVUDINE (LAMIVUDINE) UNKNOWN [Suspect]
     Active Substance: LAMIVUDINE
     Dates: start: 20141217, end: 20141224
  3. ZIDOVUDINE (ZIDOVUDINE) UNKNOWN) [Suspect]
     Active Substance: ZIDOVUDINE
     Dates: start: 20141217, end: 20141224
  4. COTRIMOXAZOLE [Suspect]
     Active Substance: SULFAMETHOXAZOLE\TRIMETHOPRIM
     Dates: start: 20140227, end: 20141224
  5. AMPICLOX (AMPICILLIN + CLOXACILLIN) [Concomitant]
  6. EFAVIRENZ (EFAVIRENZ) [Suspect]
     Active Substance: EFAVIRENZ
     Dates: start: 20141217, end: 20141224
  7. FEFOL (FEFOL) [Concomitant]
  8. ACICLOVIR (ACYCLOVIR) [Concomitant]

REACTIONS (19)
  - Oesophageal candidiasis [None]
  - Platelet count decreased [None]
  - Oral candidiasis [None]
  - Neutropenia [None]
  - Splenomegaly [None]
  - Hepatomegaly [None]
  - Wound complication [None]
  - Pallor [None]
  - Hepatotoxicity [None]
  - Blood pressure decreased [None]
  - Dehydration [None]
  - Blood creatinine increased [None]
  - Haemoglobin decreased [None]
  - Bronchopneumonia [None]
  - Pharyngeal ulceration [None]
  - Jaundice [None]
  - Haemoptysis [None]
  - Heart rate increased [None]
  - Decreased appetite [None]

NARRATIVE: CASE EVENT DATE: 20141210
